FAERS Safety Report 11427437 (Version 2)
Quarter: 2019Q1

REPORT INFORMATION
  Report Type: Report from Study
  Country: US (occurrence: US)
  Receive Date: 20150827
  Receipt Date: 20190115
  Transmission Date: 20190417
  Serious: Yes (Other)
  Sender: FDA-Public Use
  Company Number: US-SA-2015SA003680

PATIENT
  Age: 21 Year
  Sex: Male

DRUGS (17)
  1. AGALSIDASE BETA [Suspect]
     Active Substance: AGALSIDASE BETA
     Indication: FABRY^S DISEASE
     Dosage: 60 MG,QOW
     Route: 041
     Dates: start: 20040914
  2. LISINOPRIL. [Concomitant]
     Active Substance: LISINOPRIL
     Dosage: 10 MG,QH
     Route: 048
  3. TENEX [Concomitant]
     Active Substance: GUANFACINE HYDROCHLORIDE
     Indication: BLOOD PRESSURE MEASUREMENT
     Dosage: 2 MG,UNK
     Route: 048
  4. AGALSIDASE BETA [Suspect]
     Active Substance: AGALSIDASE BETA
     Dosage: 65 MG,UNK
     Route: 041
  5. AGALSIDASE BETA [Suspect]
     Active Substance: AGALSIDASE BETA
     Dosage: 65 UNK, Q2
     Dates: start: 20040914
  6. CALCIUM GLUCONATE. [Concomitant]
     Active Substance: CALCIUM GLUCONATE
     Indication: PREMEDICATION
     Dosage: 3 G,UNK
     Route: 065
  7. CALCIUM GLUCONATE. [Concomitant]
     Active Substance: CALCIUM GLUCONATE
     Dosage: 6 G,UNK
     Route: 065
  8. CALCITRIOL. [Concomitant]
     Active Substance: CALCITRIOL
     Dosage: .5 UG,QD
     Route: 048
  9. HYDROXYZINE HYDROCHLORIDE. [Concomitant]
     Active Substance: HYDROXYZINE HYDROCHLORIDE
     Dosage: 25 MG,QH
     Route: 048
  10. AGALSIDASE BETA [Suspect]
     Active Substance: AGALSIDASE BETA
     Dosage: 60 MG,QOW
     Route: 041
     Dates: start: 20040914
  11. TRILEPTAL [Suspect]
     Active Substance: OXCARBAZEPINE
     Dosage: UNK UNK,UNK
     Route: 065
  12. INDERAL LA [Concomitant]
     Active Substance: PROPRANOLOL HYDROCHLORIDE
     Dosage: 60 MG,QD
     Route: 048
  13. AGALSIDASE BETA [Suspect]
     Active Substance: AGALSIDASE BETA
     Dosage: 55 MG,QOW
     Route: 041
     Dates: start: 20041214
  14. AMERGE [Concomitant]
     Active Substance: NARATRIPTAN HYDROCHLORIDE
     Dosage: 2.5 MG,UNK
     Route: 065
  15. CYANOCOBALAMIN. [Concomitant]
     Active Substance: CYANOCOBALAMIN
     Dosage: 1000 DF,UNK
     Route: 030
  16. ZITHROMAX [Concomitant]
     Active Substance: AZITHROMYCIN DIHYDRATE
     Dosage: 250 MG,QD
     Route: 048
  17. BENADRYL [Concomitant]
     Active Substance: DIPHENHYDRAMINE HYDROCHLORIDE
     Dosage: 25 MG,UNK
     Route: 065

REACTIONS (20)
  - Lipoma [Unknown]
  - Affective disorder [Unknown]
  - Neuralgia [Unknown]
  - Sedation complication [Unknown]
  - Skin disorder [Unknown]
  - Pulmonary valve incompetence [Unknown]
  - Cafe au lait spots [Not Recovered/Not Resolved]
  - Streptococcal infection [Unknown]
  - Pyrexia [Unknown]
  - Abdominal discomfort [Unknown]
  - Microalbuminuria [Unknown]
  - Weight decreased [Not Recovered/Not Resolved]
  - Neoplasm malignant [Unknown]
  - Mitral valve incompetence [Unknown]
  - Tricuspid valve incompetence [Unknown]
  - Left ventricular hypertrophy [Recovered/Resolved]
  - Constipation [Unknown]
  - Pain [Recovered/Resolved]
  - Mass [Unknown]
  - Depression [Not Recovered/Not Resolved]

NARRATIVE: CASE EVENT DATE: 20150109
